FAERS Safety Report 7350618-1 (Version None)
Quarter: 2011Q1

REPORT INFORMATION
  Report Type: 
  Country: None (occurrence: None)
  Receive Date: 20110314
  Receipt Date: 20110303
  Transmission Date: 20110831
  Serious: Yes (Other)
  Sender: FDA-Public Use
  Company Number: DE-JNJFOC-20110302432

PATIENT
  Age: 45 Year
  Sex: Female

DRUGS (1)
  1. REMICADE [Suspect]
     Indication: ANKYLOSING SPONDYLITIS
     Route: 042

REACTIONS (3)
  - FINGER DEFORMITY [None]
  - LUPUS-LIKE SYNDROME [None]
  - FOOT DEFORMITY [None]
